FAERS Safety Report 22228712 (Version 1)
Quarter: 2023Q2

REPORT INFORMATION
  Report Type: Report from Study
  Country: US (occurrence: US)
  Receive Date: 20230419
  Receipt Date: 20230419
  Transmission Date: 20230722
  Serious: No
  Sender: FDA-Public Use
  Company Number: US-BIOVITRUM-2022-US-13590

PATIENT
  Age: 56 Year
  Sex: Female

DRUGS (3)
  1. KINERET [Suspect]
     Active Substance: ANAKINRA
     Indication: Rheumatoid arthritis
     Dosage: DAILY
     Route: 058
     Dates: start: 20221006
  2. KINERET [Suspect]
     Active Substance: ANAKINRA
     Dosage: DAILY
     Route: 058
     Dates: start: 202209
  3. KINERET [Suspect]
     Active Substance: ANAKINRA
     Dosage: DAILY
     Route: 058
     Dates: start: 20221006

REACTIONS (8)
  - Hypertension [Unknown]
  - Product dose omission issue [Unknown]
  - Pain in extremity [Unknown]
  - Injection site pain [Unknown]
  - Injection site erythema [Unknown]
  - Intentional dose omission [Unknown]
  - Localised infection [Unknown]
  - Drug ineffective [Unknown]
